FAERS Safety Report 7246402-X (Version None)
Quarter: 2011Q1

REPORT INFORMATION
  Report Type: 
  Country: None (occurrence: None)
  Receive Date: 20110126
  Receipt Date: 20100326
  Transmission Date: 20110831
  Serious: No
  Sender: FDA-Public Use
  Company Number: US-BAUSCH-2010BL001691

PATIENT
  Age: 67 Year
  Sex: Female

DRUGS (2)
  1. ZYLET [Suspect]
     Indication: EYE INFECTION
     Route: 047
     Dates: start: 20100314, end: 20100315
  2. MULTI-VITAMINS [Concomitant]

REACTIONS (5)
  - OCULAR HYPERAEMIA [None]
  - DRUG HYPERSENSITIVITY [None]
  - EYE IRRITATION [None]
  - EYE DISCHARGE [None]
  - EYE PAIN [None]
